FAERS Safety Report 6076975-4 (Version None)
Quarter: 2009Q1

REPORT INFORMATION
  Report Type: 
  Country: None (occurrence: None)
  Receive Date: 20090213
  Receipt Date: 20090204
  Transmission Date: 20090719
  Serious: Yes (Hospitalization)
  Sender: FDA-Public Use
  Company Number: SE-PURDUE-GBR_2009_0004825

PATIENT
  Age: 85 Year
  Sex: Female
  Weight: 48 kg

DRUGS (3)
  1. OXYCONTIN [Suspect]
     Indication: PAIN
     Route: 048
     Dates: start: 20081225
  2. OXYNORM KAPSEL, HARD [Suspect]
     Indication: PAIN
     Route: 048
  3. SOM230 VS OCTREOTIDE LAR [Suspect]
     Indication: METASTATIC CARCINOID TUMOUR
     Route: 065
     Dates: start: 20081027

REACTIONS (6)
  - ANOREXIA [None]
  - HYPOVOLAEMIA [None]
  - MALIGNANT NEOPLASM PROGRESSION [None]
  - METASTASES TO THORAX [None]
  - NAUSEA [None]
  - PAIN [None]
